FAERS Safety Report 12032172 (Version 1)
Quarter: 2016Q1

REPORT INFORMATION
  Report Type: Report from Study
  Country: US (occurrence: US)
  Receive Date: 20160207
  Receipt Date: 20160207
  Transmission Date: 20160526
  Serious: No
  Sender: FDA-Public Use
  Company Number: US-ABBVIE-15K-163-1511823-00

PATIENT
  Age: 56 Year
  Sex: Female

DRUGS (1)
  1. HUMIRA [Suspect]
     Active Substance: ADALIMUMAB
     Indication: COLITIS ULCERATIVE
     Route: 058
     Dates: start: 20141023

REACTIONS (9)
  - Rash [Recovering/Resolving]
  - Arthralgia [Recovering/Resolving]
  - Hyperaesthesia [Recovering/Resolving]
  - Back pain [Recovering/Resolving]
  - Inflammation [Recovering/Resolving]
  - Neuralgia [Recovering/Resolving]
  - Arthritis [Recovering/Resolving]
  - Herpes zoster [Recovering/Resolving]
  - Myalgia [Recovering/Resolving]

NARRATIVE: CASE EVENT DATE: 20150910
